FAERS Safety Report 6879276-7 (Version None)
Quarter: 2010Q3

REPORT INFORMATION
  Report Type: 
  Country: None (occurrence: None)
  Receive Date: 20100728
  Receipt Date: 20091027
  Transmission Date: 20110219
  Serious: No
  Sender: FDA-Public Use
  Company Number: US-ABBOTT-09P-163-0605870-00

PATIENT
  Sex: Female
  Weight: 65.83 kg

DRUGS (3)
  1. SYNTHROID [Suspect]
     Indication: HYPOTHYROIDISM
     Route: 048
     Dates: start: 20050101, end: 20091015
  2. DOXYCYCLINE [Concomitant]
     Indication: ROSACEA
     Route: 048
  3. ASPIRIN [Concomitant]
     Indication: CARDIOVASCULAR EVENT PROPHYLAXIS
     Route: 048

REACTIONS (3)
  - GINGIVAL BLEEDING [None]
  - GINGIVAL SWELLING [None]
  - MOUTH HAEMORRHAGE [None]
